FAERS Safety Report 9787658 (Version 2)
Quarter: 2014Q1

REPORT INFORMATION
  Report Type: Spontaneous
  Country: US (occurrence: None)
  Receive Date: 20131226
  Receipt Date: 20140122
  Transmission Date: 20141002
  Serious: Yes (Other)
  Sender: FDA-Public Use
  Company Number: 2013-US-000446

PATIENT
  Age: 46 Year
  Sex: Male
  Weight: 77.1 kg

DRUGS (5)
  1. XYREM (SODIUM OXYBATE) ORAL SOLUTION, 500MG/ML [Suspect]
     Indication: INSOMNIA
     Route: 048
     Dates: start: 20130522
  2. HIV MEDICATIONS [Suspect]
  3. TESTOSTERONE [Suspect]
  4. DILAUDID ER [Suspect]
  5. LYRICA (PREGABALIN) [Suspect]

REACTIONS (1)
  - Sleep apnoea syndrome [None]
